FAERS Safety Report 10014839 (Version 1)
Quarter: 2014Q1

REPORT INFORMATION
  Report Type: Spontaneous
  Country: KR (occurrence: KR)
  Receive Date: 20140317
  Receipt Date: 20140317
  Transmission Date: 20141002
  Serious: Yes (Death)
  Sender: FDA-Public Use
  Company Number: KR-ASTRAZENECA-2014SE17195

PATIENT
  Age: 53 Year
  Sex: Male
  Weight: 75.6 kg

DRUGS (12)
  1. LIDOCAINE [Suspect]
     Route: 042
  2. PROPOFOL [Suspect]
     Route: 042
  3. PALONOSETRON [Suspect]
     Route: 042
  4. SEVOFLURANE [Suspect]
  5. SEVOFLURANE [Suspect]
     Dosage: MAINTAINED AT 1.5-4 VOL %
  6. ROCURONIUM [Suspect]
  7. NICORANDILE [Concomitant]
     Indication: ATRIAL FIBRILLATION
  8. MOLSIDOMINE [Concomitant]
     Indication: ATRIAL FIBRILLATION
  9. ISOSORBIDE DINITRATE [Concomitant]
     Indication: ATRIAL FIBRILLATION
  10. DIGOXIN [Concomitant]
     Indication: ATRIAL FIBRILLATION
  11. FUROSEMIDE [Concomitant]
     Indication: ATRIAL FIBRILLATION
  12. SPIRONOLACTONE [Concomitant]
     Indication: ATRIAL FIBRILLATION

REACTIONS (1)
  - Torsade de pointes [Fatal]
